FAERS Safety Report 9900743 (Version 1)
Quarter: 2014Q1

REPORT INFORMATION
  Report Type: Spontaneous
  Country: US (occurrence: US)
  Receive Date: 20140217
  Receipt Date: 20140217
  Transmission Date: 20141002
  Serious: No
  Sender: FDA-Public Use
  Company Number: US-US-EMD SERONO, INC.-7268801

PATIENT
  Sex: Female
  Weight: 61 kg

DRUGS (2)
  1. REBIF [Suspect]
     Indication: MULTIPLE SCLEROSIS
     Route: 058
     Dates: start: 201309
  2. REBIF [Suspect]
     Route: 058
     Dates: start: 20131002

REACTIONS (27)
  - Nausea [Not Recovered/Not Resolved]
  - Photophobia [Not Recovered/Not Resolved]
  - Phonophobia [Not Recovered/Not Resolved]
  - Insomnia [Not Recovered/Not Resolved]
  - Activities of daily living impaired [Not Recovered/Not Resolved]
  - Intervertebral disc disorder [Unknown]
  - Knee deformity [Unknown]
  - Ankle deformity [Unknown]
  - Foot deformity [Unknown]
  - Foot deformity [Unknown]
  - Movement disorder [Unknown]
  - Posture abnormal [Unknown]
  - Motor dysfunction [Unknown]
  - Lumbar spinal stenosis [Unknown]
  - Migraine [Not Recovered/Not Resolved]
  - Sensory disturbance [Unknown]
  - Gait disturbance [Unknown]
  - Neck pain [Unknown]
  - Hypoaesthesia [Not Recovered/Not Resolved]
  - Paraesthesia [Not Recovered/Not Resolved]
  - Neck pain [Unknown]
  - Muscle spasms [Unknown]
  - Headache [Recovered/Resolved]
  - Depression [Not Recovered/Not Resolved]
  - Paraesthesia [Unknown]
  - Pain [Recovering/Resolving]
  - Myalgia [Unknown]
